FAERS Safety Report 7291921-3 (Version None)
Quarter: 2011Q1

REPORT INFORMATION
  Report Type: 
  Country: None (occurrence: None)
  Receive Date: 20110214
  Receipt Date: 20110131
  Transmission Date: 20110831
  Serious: Yes (Hospitalization)
  Sender: FDA-Public Use
  Company Number: US-CELGENEUS-163-21880-11020126

PATIENT
  Sex: Female

DRUGS (13)
  1. IMODIUM [Concomitant]
     Route: 065
  2. MULTI-VITAMINS [Concomitant]
     Route: 065
  3. VICODIN [Concomitant]
     Route: 065
  4. LOMOTIL [Concomitant]
     Route: 065
  5. NORVASC [Concomitant]
     Route: 065
  6. ALEVE [Concomitant]
     Route: 065
  7. KEFLEX [Concomitant]
     Route: 065
  8. LANTUS [Concomitant]
     Route: 065
  9. REVLIMID [Suspect]
     Indication: MULTIPLE MYELOMA
     Route: 048
     Dates: start: 20101014
  10. DETROL [Concomitant]
     Route: 065
  11. PRILOSEC [Concomitant]
     Route: 065
  12. BUMEX [Concomitant]
     Route: 065
  13. PROTONIX [Concomitant]
     Route: 065

REACTIONS (1)
  - OSTEOARTHRITIS [None]
